FAERS Safety Report 7832107-0 (Version None)
Quarter: 2011Q4

REPORT INFORMATION
  Report Type: 
  Country: None (occurrence: None)
  Receive Date: 20111022
  Receipt Date: 20111010
  Transmission Date: 20120403
  Serious: Yes (Other)
  Sender: FDA-Public Use
  Company Number: US-BAYER-2011-020148

PATIENT
  Age: 20 Year
  Sex: Female
  Weight: 165 kg

DRUGS (2)
  1. YAZ [Suspect]
  2. YAZ [Suspect]
     Indication: PREMENSTRUAL SYNDROME
     Dosage: UNK
     Dates: start: 20090101

REACTIONS (5)
  - INJURY [None]
  - PAIN [None]
  - MENORRHAGIA [None]
  - MENTAL DISORDER [None]
  - THROMBOSIS [None]
